FAERS Safety Report 18916591 (Version 1)
Quarter: 2021Q1

REPORT INFORMATION
  Report Type: Spontaneous
  Country: DE (occurrence: DE)
  Receive Date: 20210219
  Receipt Date: 20210219
  Transmission Date: 20210420
  Serious: Yes (Other)
  Sender: FDA-Public Use
  Company Number: DE-KYOWAKIRIN-2021BKK002217

PATIENT

DRUGS (1)
  1. POTELIGEO [Suspect]
     Active Substance: MOGAMULIZUMAB-KPKC
     Indication: CUTANEOUS T-CELL LYMPHOMA STAGE IV
     Dosage: 1MG/KG BODY WEIGHT (85 MG), 1 DOSE SO FAR
     Route: 065
     Dates: start: 20210129

REACTIONS (2)
  - Staphylococcal infection [Unknown]
  - Medical device site infection [Unknown]

NARRATIVE: CASE EVENT DATE: 20210204
